FAERS Safety Report 6919031-2 (Version None)
Quarter: 2010Q3

REPORT INFORMATION
  Report Type: 
  Country: None (occurrence: None)
  Receive Date: 20100811
  Receipt Date: 20100803
  Transmission Date: 20110219
  Serious: Yes (Other)
  Sender: FDA-Public Use
  Company Number: US-ALEXION-A201000281

PATIENT
  Sex: Female
  Weight: 114.29 kg

DRUGS (16)
  1. SOLIRIS [Suspect]
     Indication: PAROXYSMAL NOCTURNAL HAEMOGLOBINURIA
     Dosage: 600 MG, QW X 4 WEEKS
     Route: 042
     Dates: start: 20090507, end: 20090101
  2. SOLIRIS [Suspect]
     Dosage: 900 MG, Q2W
     Route: 042
     Dates: start: 20090605
  3. METFORMIN HCL [Concomitant]
     Dosage: 500 MG, BID
     Route: 048
     Dates: start: 20100209
  4. ALLOPURINOL [Concomitant]
     Dosage: 100 MG, BID
     Route: 048
     Dates: start: 20100112
  5. ALENDRONATE SODIUM [Concomitant]
     Dosage: 70 MG, QW
  6. ENALAPRIL MALEATE [Concomitant]
     Dosage: 10 MG, QD
  7. HYDROCHLOROTHIAZIDE [Concomitant]
     Dosage: 25 MG, BID
  8. METOPROLOL [Concomitant]
     Dosage: 50 MG, BID
  9. FOLIC ACID [Concomitant]
     Dosage: 1 MG, QD
  10. CYCLOBENZAPRINE [Concomitant]
     Dosage: 10 MG, BID
  11. FERROUS SULFATE [Concomitant]
     Dosage: 325 MG, BID
  12. PREDNISONE [Concomitant]
     Dosage: 5 MG, QD
  13. ASPIRIN [Concomitant]
     Dosage: 81 MG, QD
  14. SYNTHROID [Concomitant]
     Dosage: 75 UG, QD
  15. OMEPRAZOLE [Concomitant]
     Dosage: 20 MG, QD
  16. ACETAMINOPHEN AND HYDROCODONE BITARTRATE [Concomitant]
     Dosage: 5/500

REACTIONS (1)
  - THYROID CANCER [None]
